FAERS Safety Report 5541980-0 (Version None)
Quarter: 2007Q4

REPORT INFORMATION
  Report Type: 
  Country: None (occurrence: None)
  Receive Date: 20071205
  Receipt Date: 20071119
  Transmission Date: 20080405
  Serious: Yes (Disabling, Other)
  Sender: FDA-Public Use
  Company Number: ENTC2007-0342

PATIENT
  Age: 74 Year
  Sex: Female

DRUGS (1)
  1. STALEVO 100 [Suspect]
     Indication: PARKINSON'S DISEASE
     Dosage: 3/ 1 DAYS ORAL
     Route: 048
     Dates: start: 20070913, end: 20071016

REACTIONS (4)
  - ABASIA [None]
  - APHASIA [None]
  - DRUG INTOLERANCE [None]
  - HALLUCINATION [None]
